FAERS Safety Report 4786367-3 (Version None)
Quarter: 2005Q3

REPORT INFORMATION
  Report Type: 
  Country: None (occurrence: None)
  Receive Date: 20050914
  Receipt Date: 20050216
  Transmission Date: 20060218
  Serious: Yes (Hospitalization)
  Sender: FDA-Public Use
  Company Number: 163-20785-05020279

PATIENT
  Age: 72 Year
  Sex: Male
  Weight: 107.3 kg

DRUGS (17)
  1. THALIDOMID [Suspect]
     Indication: PROSTATIC INTRAEPITHELIAL NEOPLASIA
     Dosage: 200 MG, DAILY, ORAL;  200 MG, DAILY, ORAL; 100 MG, DAILY, ORAL
     Route: 048
     Dates: start: 20020304
  2. THALIDOMID [Suspect]
     Indication: PROSTATIC INTRAEPITHELIAL NEOPLASIA
     Dosage: 200 MG, DAILY, ORAL;  200 MG, DAILY, ORAL; 100 MG, DAILY, ORAL
     Route: 048
     Dates: start: 20040426
  3. THALIDOMID [Suspect]
     Indication: PROSTATIC INTRAEPITHELIAL NEOPLASIA
     Dosage: 200 MG, DAILY, ORAL;  200 MG, DAILY, ORAL; 100 MG, DAILY, ORAL
     Route: 048
     Dates: start: 20050109
  4. PLACEBO (THALIDOMIDE) (CAPSULES) [Suspect]
     Indication: PROSTATIC INTRAEPITHELIAL NEOPLASIA
     Dosage: DAILY, ORAL
     Route: 048
     Dates: start: 20020304
  5. PLACEBO (THALIDOMIDE) (CAPSULES) [Suspect]
     Indication: PROSTATIC INTRAEPITHELIAL NEOPLASIA
     Dosage: DAILY, ORAL
     Route: 048
     Dates: start: 20040426
  6. PLACEBO (THALIDOMIDE) (CAPSULES) [Suspect]
     Indication: PROSTATIC INTRAEPITHELIAL NEOPLASIA
     Dosage: DAILY, ORAL
     Route: 048
     Dates: start: 20050109
  7. LEUPROLIDE ACETATE [Suspect]
     Indication: PROSTATIC INTRAEPITHELIAL NEOPLASIA
     Dosage: (L) 7.5MG IM EVERY 28 DAYS FOR 6 CYCLES OR (L) 22.5MG IM  EVERY 84DAYS FOR 2 CYCLES
     Route: 030
     Dates: start: 20020304
  8. LEUPROLIDE ACETATE [Suspect]
     Indication: PROSTATIC INTRAEPITHELIAL NEOPLASIA
     Dosage: (L) 7.5MG IM EVERY 28 DAYS FOR 6 CYCLES OR (L) 22.5MG IM  EVERY 84DAYS FOR 2 CYCLES
     Route: 030
     Dates: start: 20040426
  9. LEUPROLIDE ACETATE [Suspect]
     Indication: PROSTATIC INTRAEPITHELIAL NEOPLASIA
     Dosage: (L) 7.5MG IM EVERY 28 DAYS FOR 6 CYCLES OR (L) 22.5MG IM  EVERY 84DAYS FOR 2 CYCLES
     Route: 030
     Dates: start: 20050109
  10. GOSERELIN (G) [Suspect]
     Indication: PROSTATIC INTRAEPITHELIAL NEOPLASIA
     Dosage: (G) 3.6 SC EVERY 28 DAYS FOR 6 CYCLES OR  10.8MG SC EVERY 84DAYS  FOR 2 CYCLES
     Route: 058
     Dates: start: 20020304
  11. GOSERELIN (G) [Suspect]
     Indication: PROSTATIC INTRAEPITHELIAL NEOPLASIA
     Dosage: (G) 3.6 SC EVERY 28 DAYS FOR 6 CYCLES OR  10.8MG SC EVERY 84DAYS  FOR 2 CYCLES
     Route: 058
     Dates: start: 20040426
  12. GOSERELIN (G) [Suspect]
     Indication: PROSTATIC INTRAEPITHELIAL NEOPLASIA
     Dosage: (G) 3.6 SC EVERY 28 DAYS FOR 6 CYCLES OR  10.8MG SC EVERY 84DAYS  FOR 2 CYCLES
     Route: 058
     Dates: start: 20050109
  13. HYDROCHLOROTHIAZIDE [Concomitant]
  14. LORTAB [Concomitant]
  15. ATENOLOL [Concomitant]
  16. GABAPENTIN [Concomitant]
  17. LISINOPRIL [Concomitant]

REACTIONS (2)
  - CONFUSIONAL STATE [None]
  - FATIGUE [None]
